FAERS Safety Report 9597625 (Version 1)
Quarter: 2013Q4

REPORT INFORMATION
  Report Type: Spontaneous
  Country: US (occurrence: US)
  Receive Date: 20131004
  Receipt Date: 20131004
  Transmission Date: 20140711
  Serious: No
  Sender: FDA-Public Use
  Company Number: US-AMGEN-USASP2013019983

PATIENT
  Age: 52 Year
  Sex: Female
  Weight: 58.5 kg

DRUGS (5)
  1. ENBREL [Suspect]
     Indication: PRODUCT USED FOR UNKNOWN INDICATION
     Dosage: 50 MG, QWK
     Route: 058
     Dates: start: 2011, end: 201301
  2. AMLODIPINE [Concomitant]
     Dosage: 2.5 MG, UNK
  3. METHOTREXATE [Concomitant]
     Dosage: 2.5 MG, UNK
  4. LEXAPRO [Concomitant]
     Dosage: 5 MG, UNK
  5. FOLIC ACID [Concomitant]
     Dosage: UNK

REACTIONS (1)
  - Oedema peripheral [Unknown]
